FAERS Safety Report 15880121 (Version 1)
Quarter: 2019Q1

REPORT INFORMATION
  Report Type: Spontaneous
  Country: FR (occurrence: FR)
  Receive Date: 20190128
  Receipt Date: 20190128
  Transmission Date: 20190417
  Serious: Yes (Other)
  Sender: FDA-Public Use
  Company Number: FR-ALLERGAN-1903590US

PATIENT
  Age: 75 Year
  Sex: Female

DRUGS (3)
  1. LUCENTIS [Concomitant]
     Active Substance: RANIBIZUMAB
     Dosage: UNK
     Route: 031
  2. OZURDEX [Suspect]
     Active Substance: DEXAMETHASONE
     Indication: CYSTOID MACULAR OEDEMA
     Dosage: 0.7 MG, SINGLE
     Route: 031
     Dates: start: 20181219, end: 20181219
  3. OZURDEX [Suspect]
     Active Substance: DEXAMETHASONE
     Dosage: 0.7 MG, SINGLE
     Route: 031
     Dates: start: 2016, end: 2016

REACTIONS (4)
  - Visual acuity reduced [Unknown]
  - Visual impairment [Unknown]
  - Off label use [Unknown]
  - Macular fibrosis [Unknown]

NARRATIVE: CASE EVENT DATE: 201601
